FAERS Safety Report 9374368 (Version 1)
Quarter: 2013Q2

REPORT INFORMATION
  Report Type: Spontaneous
  Country: US (occurrence: US)
  Receive Date: 20130628
  Receipt Date: 20130628
  Transmission Date: 20140414
  Serious: No
  Sender: FDA-Public Use
  Company Number: US-PFIZER INC-2013192706

PATIENT
  Age: 36 Year
  Sex: Male

DRUGS (9)
  1. DILANTIN [Suspect]
     Indication: CONVULSION
     Dosage: UNK
     Dates: start: 19770710, end: 1979
  2. HEXACHLOROPHENE [Suspect]
     Dosage: UNK
  3. CARNITOR [Concomitant]
     Indication: CONVULSION
     Dosage: UNK
  4. DEPAKOTE [Concomitant]
     Dosage: UNK
  5. DIAMOX [Concomitant]
     Indication: SLEEP APNOEA SYNDROME
     Dosage: UNK
  6. GALLAMINE [Concomitant]
     Indication: SLEEP APNOEA SYNDROME
     Dosage: UNK
  7. PRIMIDONE [Concomitant]
     Indication: CONVULSION
     Dosage: UNK
  8. THIAMINE [Concomitant]
     Dosage: UNK
  9. ZANTAC [Concomitant]
     Dosage: UNK

REACTIONS (1)
  - Drug screen positive [Unknown]
